FAERS Safety Report 15401992 (Version 4)
Quarter: 2018Q4

REPORT INFORMATION
  Report Type: Spontaneous
  Country: CA (occurrence: CA)
  Receive Date: 20180919
  Receipt Date: 20181104
  Transmission Date: 20190204
  Serious: Yes (Other)
  Sender: FDA-Public Use
  Company Number: CA-ROCHE-2184484

PATIENT
  Age: 49 Year
  Sex: Female

DRUGS (10)
  1. XOLAIR [Suspect]
     Active Substance: OMALIZUMAB
     Route: 058
     Dates: start: 20180404
  2. BILASTINE [Concomitant]
     Active Substance: BILASTINE
     Indication: PRODUCT USED FOR UNKNOWN INDICATION
     Dosage: 1 DF, QD
     Route: 048
  3. XOLAIR [Suspect]
     Active Substance: OMALIZUMAB
     Route: 058
     Dates: start: 20171214
  4. XOLAIR [Suspect]
     Active Substance: OMALIZUMAB
     Route: 058
     Dates: start: 20180208
  5. XOLAIR [Suspect]
     Active Substance: OMALIZUMAB
     Route: 058
     Dates: start: 201810
  6. AERIUS (DESLORATADINE) [Concomitant]
     Active Substance: DESLORATADINE
     Indication: PRODUCT USED FOR UNKNOWN INDICATION
     Dosage: 1 DF, QD
     Route: 048
  7. XOLAIR [Suspect]
     Active Substance: OMALIZUMAB
     Indication: CHRONIC SPONTANEOUS URTICARIA
     Route: 058
     Dates: start: 20171116
  8. XOLAIR [Suspect]
     Active Substance: OMALIZUMAB
     Route: 058
     Dates: start: 20180111
  9. RUPALL [Concomitant]
     Indication: CHRONIC SPONTANEOUS URTICARIA
     Dosage: 2 DF, QD
     Route: 048
  10. EPIPEN [Concomitant]
     Active Substance: EPINEPHRINE
     Indication: CHRONIC SPONTANEOUS URTICARIA
     Route: 065

REACTIONS (10)
  - Feeling abnormal [Unknown]
  - Urticaria [Not Recovered/Not Resolved]
  - Nasopharyngitis [Unknown]
  - Malaise [Unknown]
  - Skin haemorrhage [Unknown]
  - Pruritus [Recovered/Resolved]
  - Pruritus generalised [Recovered/Resolved]
  - Glaucoma [Unknown]
  - Visual impairment [Unknown]
  - Scratch [Unknown]

NARRATIVE: CASE EVENT DATE: 201802
